FAERS Safety Report 8781041 (Version 2)
Quarter: 2012Q4

REPORT INFORMATION
  Report Type: 
  Country: US (occurrence: US)
  Receive Date: 20120913
  Receipt Date: 20121214
  Transmission Date: 20130627
  Serious: Yes (Other)
  Sender: FDA-Public Use
  Company Number: US-VERTEX PHARMACEUTICAL INC.-AE-2012-008019

PATIENT
  Age: 51 Year
  Sex: Male

DRUGS (4)
  1. VX-950 (TELAPREVIR) [Suspect]
     Indication: HEPATITIS C
     Dosage: UNK
     Route: 048
     Dates: start: 20111021, end: 20120118
  2. PEGASYS [Suspect]
     Indication: HEPATITIS C
     Dosage: UNK
     Dates: start: 20111021, end: 20120921
  3. RIBAVIRIN [Suspect]
     Indication: HEPATITIS C
     Dosage: UNK
     Dates: start: 20111021
  4. RIBAVIRIN [Suspect]
     Dosage: 600 mg, UNK
     Dates: start: 201204, end: 20120921

REACTIONS (6)
  - Anaemia [Not Recovered/Not Resolved]
  - Weight decreased [Not Recovered/Not Resolved]
  - Muscle atrophy [Not Recovered/Not Resolved]
  - Exercise tolerance decreased [Not Recovered/Not Resolved]
  - Alopecia [Not Recovered/Not Resolved]
  - Asthenia [Not Recovered/Not Resolved]
